FAERS Safety Report 7999799-7 (Version None)
Quarter: 2011Q4

REPORT INFORMATION
  Report Type: 
  Country: None (occurrence: None)
  Receive Date: 20111222
  Receipt Date: 20111213
  Transmission Date: 20120403
  Serious: Yes (Other)
  Sender: FDA-Public Use
  Company Number: US-BIOGENIDEC-2011BI037199

PATIENT
  Age: 47 Year
  Sex: Female

DRUGS (2)
  1. AVONEX [Suspect]
     Route: 030
     Dates: start: 19960808, end: 19961208
  2. AVONEX [Suspect]
     Indication: MULTIPLE SCLEROSIS
     Route: 030
     Dates: start: 20090721

REACTIONS (8)
  - SKIN CANCER [None]
  - NAUSEA [None]
  - GALLBLADDER OPERATION [None]
  - MULTIPLE SCLEROSIS RELAPSE [None]
  - LIVER INJURY [None]
  - VOMITING [None]
  - CENTRAL VENOUS CATHETERISATION [None]
  - LUNG NEOPLASM MALIGNANT [None]
